FAERS Safety Report 12378131 (Version 1)
Quarter: 2016Q2

REPORT INFORMATION
  Report Type: Spontaneous
  Country: US (occurrence: US)
  Receive Date: 20160517
  Receipt Date: 20160517
  Transmission Date: 20160815
  Serious: Yes (Hospitalization)
  Sender: FDA-Public Use
  Company Number: US-UPSHER-SMITH LABORATORIES, INC.-15002240

PATIENT
  Age: 81 Year
  Sex: Male

DRUGS (1)
  1. PREVALITE [Suspect]
     Active Substance: CHOLESTYRAMINE
     Indication: BLOOD CHOLESTEROL INCREASED
     Dosage: 4 G, QD
     Route: 048
     Dates: start: 20090624, end: 20150813

REACTIONS (3)
  - Abdominal pain upper [Recovered/Resolved]
  - Cholelithiasis [Not Recovered/Not Resolved]
  - Vomiting [Recovered/Resolved]

NARRATIVE: CASE EVENT DATE: 20150813
